FAERS Safety Report 21001560 (Version 2)
Quarter: 2022Q4

REPORT INFORMATION
  Report Type: Spontaneous
  Country: US (occurrence: US)
  Receive Date: 20220624
  Receipt Date: 20221226
  Transmission Date: 20230112
  Serious: No
  Sender: FDA-Public Use
  Company Number: US-BioHaven Pharmaceuticals-2022BHV000907

PATIENT
  Age: 51 Year
  Sex: Male
  Weight: 127.12 kg

DRUGS (4)
  1. NURTEC ODT [Suspect]
     Active Substance: RIMEGEPANT SULFATE
     Indication: Migraine
     Dosage: COULD ONLY TAKE IT FOR ONE WEEK; STARTED TAKING IT AS NEEDED AT FIRST THEN WENT TO TAKING IT EVERY O
     Route: 048
     Dates: start: 20220330, end: 2022
  2. UNSPECIFIED INGREDIENT [Concomitant]
     Active Substance: UNSPECIFIED INGREDIENT
     Indication: Neuropathy peripheral
     Route: 065
  3. LISINOPRIL [Concomitant]
     Active Substance: LISINOPRIL
     Route: 065
  4. OMEPRAZOLE [Concomitant]
     Active Substance: OMEPRAZOLE
     Route: 065

REACTIONS (5)
  - Dizziness [Recovered/Resolved]
  - Anxiety [Recovered/Resolved]
  - Drug intolerance [Unknown]
  - Nausea [Unknown]
  - Abdominal pain upper [Unknown]

NARRATIVE: CASE EVENT DATE: 20220101
